FAERS Safety Report 5877406-7 (Version None)
Quarter: 2008Q3

REPORT INFORMATION
  Report Type: 
  Country: None (occurrence: None)
  Receive Date: 20080909
  Receipt Date: 20080825
  Transmission Date: 20090109
  Serious: Yes (Hospitalization)
  Sender: FDA-Public Use
  Company Number: 2008AL005989

PATIENT
  Age: 76 Year
  Sex: Female
  Weight: 60.3284 kg

DRUGS (3)
  1. DIGOXIN [Suspect]
     Indication: CARDIAC VALVE DISEASE
     Dosage: 0.25MG, DAILY PO
     Route: 048
     Dates: start: 20070401
  2. LESCOL [Concomitant]
  3. SYNTHROID [Concomitant]

REACTIONS (7)
  - ATRIAL FIBRILLATION [None]
  - DEPRESSION [None]
  - HEART RATE INCREASED [None]
  - HEART RATE IRREGULAR [None]
  - NAUSEA [None]
  - PALPITATIONS [None]
  - THERAPEUTIC AGENT TOXICITY [None]
